FAERS Safety Report 19167642 (Version 2)
Quarter: 2021Q2

REPORT INFORMATION
  Report Type: Spontaneous
  Country: GB (occurrence: GB)
  Receive Date: 20210422
  Receipt Date: 20210629
  Transmission Date: 20210717
  Serious: Yes (Hospitalization, Other)
  Sender: FDA-Public Use
  Company Number: GB-35507-2021-04890

PATIENT
  Age: 26 Year
  Sex: Female

DRUGS (12)
  1. MAGNESIUM [Suspect]
     Active Substance: MAGNESIUM
     Dosage: UNK
     Route: 048
  2. OMEPRAZOLE. [Suspect]
     Active Substance: OMEPRAZOLE
     Indication: GASTROOESOPHAGEAL REFLUX DISEASE
     Dosage: UNK
     Route: 065
  3. PHOSPHATE SANDOZ [Suspect]
     Active Substance: SODIUM PHOSPHATE, MONOBASIC, ANHYDROUS
     Indication: ELECTROLYTE SUBSTITUTION THERAPY
     Dosage: 2 DOSAGE FORM, BID
     Route: 048
  4. RANITIDINE. [Suspect]
     Active Substance: RANITIDINE
     Indication: GASTROOESOPHAGEAL REFLUX DISEASE
     Dosage: UNK
     Route: 065
  5. NORMAL SALINE [Suspect]
     Active Substance: SODIUM CHLORIDE
     Indication: ELECTROLYTE SUBSTITUTION THERAPY
     Dosage: 2 LITER
     Route: 065
  6. NAPROXEN. [Suspect]
     Active Substance: NAPROXEN
     Indication: PRODUCT USED FOR UNKNOWN INDICATION
     Dosage: 2 DOSAGE FORM, RECEIVED TWO DOSES
     Route: 065
  7. NIFEDIPINE. [Suspect]
     Active Substance: NIFEDIPINE
     Indication: TOCOLYSIS
     Dosage: UNK
     Route: 065
  8. RENNIE [CALCIUM CARBONATE;MAGNESIUM CARBONATE HYDROXIDE] [Suspect]
     Active Substance: CALCIUM CARBONATE\MAGNESIUM CARBONATE
     Indication: GASTROOESOPHAGEAL REFLUX DISEASE
     Dosage: 72 DOSAGE FORM, QD
     Route: 048
  9. POTASSIUM CHLORIDE. [Suspect]
     Active Substance: POTASSIUM CHLORIDE
     Indication: HYPOKALAEMIA
     Dosage: UNK, STRENGTH 40 MMOL
     Route: 051
  10. SANDO K [POTASSIUM CHLORIDE] [Suspect]
     Active Substance: POTASSIUM
     Indication: ELECTROLYTE SUBSTITUTION THERAPY
     Dosage: 2 DOSAGE FORM, BID
     Route: 048
  11. MAGNESIUM [Suspect]
     Active Substance: MAGNESIUM
     Indication: BLOOD MAGNESIUM DECREASED
     Dosage: 1 LITER
     Route: 051
  12. SERTRALINE [Suspect]
     Active Substance: SERTRALINE HYDROCHLORIDE
     Indication: DEPRESSION
     Dosage: 50 MILLIGRAM, QD
     Route: 065

REACTIONS (6)
  - Premature delivery [Unknown]
  - Uterine irritability [Recovered/Resolved]
  - Exposure during pregnancy [Unknown]
  - Hypokalaemia [Recovered/Resolved]
  - Premature labour [Unknown]
  - Urinary tract infection [Unknown]
